FAERS Safety Report 5801863-5 (Version None)
Quarter: 2008Q3

REPORT INFORMATION
  Report Type: 
  Country: None (occurrence: None)
  Receive Date: 20080702
  Receipt Date: 20080620
  Transmission Date: 20090109
  Serious: Yes (Hospitalization)
  Sender: FDA-Public Use
  Company Number: 07P-062-0423801-00

PATIENT
  Age: 10 Month
  Sex: Male

DRUGS (4)
  1. SYNAGIS [Suspect]
     Indication: IMMUNISATION
     Dosage: 1.11 ML; 1.16 MILLICURIES
     Route: 030
     Dates: start: 20071004, end: 20071004
  2. SYNAGIS [Suspect]
     Indication: RESPIRATORY SYNCYTIAL VIRUS INFECTION
     Dosage: 1.11 ML; 1.16 MILLICURIES
     Route: 030
     Dates: start: 20071004, end: 20071004
  3. SYNAGIS [Suspect]
     Indication: IMMUNISATION
     Dosage: 1.11 ML; 1.16 MILLICURIES
     Route: 030
     Dates: start: 20071124, end: 20071129
  4. SYNAGIS [Suspect]
     Indication: RESPIRATORY SYNCYTIAL VIRUS INFECTION
     Dosage: 1.11 ML; 1.16 MILLICURIES
     Route: 030
     Dates: start: 20071124, end: 20071129

REACTIONS (4)
  - DECREASED APPETITE [None]
  - MALAISE [None]
  - PYREXIA [None]
  - RESTLESSNESS [None]
